FAERS Safety Report 6880024-5 (Version None)
Quarter: 2010Q3

REPORT INFORMATION
  Report Type: 
  Country: None (occurrence: None)
  Receive Date: 20100728
  Receipt Date: 20100719
  Transmission Date: 20110219
  Serious: Yes (Hospitalization)
  Sender: FDA-Public Use
  Company Number: US-ASTRAZENECA-2009UW10378

PATIENT
  Age: 66 Year
  Sex: Female

DRUGS (6)
  1. ATACAND [Suspect]
     Indication: HYPERTENSION
     Route: 048
     Dates: start: 20090307
  2. NEXIUM [Suspect]
     Route: 048
  3. CRESTOR [Suspect]
     Route: 048
  4. LASIX [Concomitant]
  5. ANTIBIOTICS [Concomitant]
  6. PROTONIX [Concomitant]

REACTIONS (7)
  - APHAGIA [None]
  - FOOD POISONING [None]
  - HYPERTENSION [None]
  - INFECTED SKIN ULCER [None]
  - MALAISE [None]
  - MIGRAINE [None]
  - RASH [None]
